FAERS Safety Report 6860958-8 (Version None)
Quarter: 2010Q3

REPORT INFORMATION
  Report Type: 
  Country: None (occurrence: None)
  Receive Date: 20100720
  Receipt Date: 20100709
  Transmission Date: 20110219
  Serious: Yes (Other)
  Sender: FDA-Public Use
  Company Number: RU-JNJFOC-20100604551

PATIENT
  Sex: Female

DRUGS (2)
  1. MEBENDAZOLE [Suspect]
     Indication: HEPATIC ECHINOCOCCIASIS
     Route: 048
  2. ALL OTHER THERAPEUTIC PRODUCT [Suspect]
     Indication: PRODUCT USED FOR UNKNOWN INDICATION
     Route: 065

REACTIONS (5)
  - AGRANULOCYTOSIS [None]
  - ASTHENIA [None]
  - OROPHARYNGEAL PAIN [None]
  - THERAPEUTIC RESPONSE DECREASED [None]
  - WHITE BLOOD CELL COUNT DECREASED [None]
